FAERS Safety Report 5625723-8 (Version None)
Quarter: 2008Q1

REPORT INFORMATION
  Report Type: 
  Country: None (occurrence: None)
  Receive Date: 20080214
  Receipt Date: 20080206
  Transmission Date: 20080703
  Serious: Yes (Hospitalization)
  Sender: FDA-Public Use
  Company Number: DE-BAYER-200812357GPV

PATIENT
  Age: 24 Year
  Sex: Female
  Weight: 56 kg

DRUGS (3)
  1. BETAFERON [Suspect]
     Indication: MULTIPLE SCLEROSIS
     Route: 058
     Dates: start: 20071001
  2. PARACETAMOL [Concomitant]
     Indication: ADVERSE DRUG REACTION
     Route: 048
     Dates: start: 20071001
  3. CONTRACEPTIVES [Concomitant]
     Indication: CONTRACEPTION
     Route: 065

REACTIONS (2)
  - ADVERSE DRUG REACTION [None]
  - LIVER FUNCTION TEST ABNORMAL [None]
